FAERS Safety Report 10486355 (Version 1)
Quarter: 2014Q3

REPORT INFORMATION
  Report Type: Spontaneous
  Country: GB (occurrence: None)
  Receive Date: 20140929
  Receipt Date: 20140929
  Transmission Date: 20150326
  Serious: Yes (Other)
  Sender: FDA-Public Use
  Company Number: 2014MPI01052

PATIENT
  Sex: Male

DRUGS (1)
  1. ADCETRIS [Suspect]
     Active Substance: BRENTUXIMAB VEDOTIN
     Indication: HODGKIN^S DISEASE
     Dosage: Q21D
     Dates: start: 20120910

REACTIONS (5)
  - Herpes zoster [None]
  - Graft versus host disease [None]
  - Thrombocytopenia [None]
  - Neutropenia [None]
  - Peripheral sensory neuropathy [None]
